FAERS Safety Report 8910737 (Version 2)
Quarter: 2012Q4

REPORT INFORMATION
  Report Type: 
  Country: US (occurrence: US)
  Receive Date: 20121115
  Receipt Date: 20121129
  Transmission Date: 20130627
  Serious: Yes (Hospitalization)
  Sender: FDA-Public Use
  Company Number: US-ASTRAZENECA-2012SE84838

PATIENT
  Age: 0 Year
  Sex: Male

DRUGS (7)
  1. SYNAGIS [Suspect]
     Route: 030
     Dates: start: 201111
  2. LASIX [Concomitant]
     Route: 048
  3. ENALAPRIL [Concomitant]
     Route: 048
  4. ASPIRIN [Concomitant]
     Route: 048
  5. POLYVITAMIN [Concomitant]
  6. IRON [Concomitant]
  7. DIGOXIN [Concomitant]
     Dosage: 50 MCG/ML
     Route: 048

REACTIONS (2)
  - Rotavirus infection [Recovered/Resolved]
  - Respiratory syncytial virus infection [Recovered/Resolved]
